FAERS Safety Report 23763192 (Version 1)
Quarter: 2024Q2

REPORT INFORMATION
  Report Type: Spontaneous
  Country: CA (occurrence: CA)
  Receive Date: 20240419
  Receipt Date: 20240419
  Transmission Date: 20240715
  Serious: Yes (Other)
  Sender: FDA-Public Use
  Company Number: CA-002147023-NVSC2024CA080584

PATIENT
  Age: 73 Year
  Sex: Male

DRUGS (1)
  1. BEOVU [Suspect]
     Active Substance: BROLUCIZUMAB-DBLL
     Indication: Product used for unknown indication
     Dosage: ONCE
     Route: 031

REACTIONS (4)
  - Pain [Recovering/Resolving]
  - Visual impairment [Recovering/Resolving]
  - Endophthalmitis [Recovering/Resolving]
  - Erythema [Recovering/Resolving]
